FAERS Safety Report 19291120 (Version 1)
Quarter: 2021Q2

REPORT INFORMATION
  Report Type: Spontaneous
  Country: FR (occurrence: FR)
  Receive Date: 20210523
  Receipt Date: 20210523
  Transmission Date: 20210717
  Serious: Yes (Other)
  Sender: FDA-Public Use
  Company Number: FR-TEVA-2021-FR-1913519

PATIENT
  Age: 52 Year
  Sex: Female
  Weight: 47 kg

DRUGS (7)
  1. PANTOPRAZOL [Concomitant]
     Active Substance: PANTOPRAZOLE SODIUM
     Dosage: THERAPY START DATE :ASKU
     Route: 048
  2. DALACINE [Concomitant]
     Active Substance: CLINDAMYCIN
     Indication: OSTEOMYELITIS
     Dosage: 1500MILLIGRAM
     Route: 048
     Dates: start: 20210112, end: 20210316
  3. LEVOFLOXA [Suspect]
     Active Substance: LEVOFLOXACIN
     Indication: OSTEOMYELITIS
     Dosage: 500MILLIGRAM
     Route: 048
     Dates: start: 20210112, end: 20210128
  4. FLUCONAZOLE. [Concomitant]
     Active Substance: FLUCONAZOLE
     Indication: OSTEOMYELITIS
     Dosage: 400MILLIGRAM
     Route: 048
     Dates: start: 20210112
  5. ZOPICLO [Concomitant]
     Dosage: THERAPY START DATE :ASKU
     Route: 048
  6. KEPPRA [Concomitant]
     Active Substance: LEVETIRACETAM
     Dosage: THERAPY START DATE :ASKU:UNIT DOSE:1000MILLIGRAM
     Route: 048
  7. LYRICA [Concomitant]
     Active Substance: PREGABALIN
     Dosage: THERAPY START DATE :ASKU:UNIT DOSE:100MILLIGRAM
     Route: 065

REACTIONS (2)
  - Tendon rupture [Recovered/Resolved]
  - Neutropenia [Recovering/Resolving]

NARRATIVE: CASE EVENT DATE: 20210122
